FAERS Safety Report 8317038-4 (Version None)
Quarter: 2012Q2

REPORT INFORMATION
  Report Type: 
  Country: None (occurrence: None)
  Receive Date: 20120427
  Receipt Date: 20120413
  Transmission Date: 20120825
  Serious: Yes (Other)
  Sender: FDA-Public Use
  Company Number: DE-PFIZER INC-2012101181

PATIENT
  Sex: Female

DRUGS (1)
  1. ADRENALIN IN OIL INJ [Suspect]
     Dosage: SINGLE FULL DOSE
     Dates: start: 20120413

REACTIONS (4)
  - INJURY ASSOCIATED WITH DEVICE [None]
  - INJECTION SITE ANAESTHESIA [None]
  - INJECTION SITE DISCOLOURATION [None]
  - PAIN IN EXTREMITY [None]
